FAERS Safety Report 16791092 (Version 1)
Quarter: 2019Q3

REPORT INFORMATION
  Report Type: Spontaneous
  Country: FR (occurrence: FR)
  Receive Date: 20190910
  Receipt Date: 20190910
  Transmission Date: 20191005
  Serious: Yes (Death)
  Sender: FDA-Public Use
  Company Number: FR-MYLANLABS-2019M1083869

PATIENT
  Age: 65 Year
  Sex: Female
  Weight: 92 kg

DRUGS (11)
  1. PROPOFOL. [Suspect]
     Active Substance: PROPOFOL
     Indication: INDUCTION OF ANAESTHESIA
     Route: 042
     Dates: start: 20190228, end: 20190228
  2. VORICONAZOLE ARROW [Suspect]
     Active Substance: VORICONAZOLE
     Indication: ANTIBIOTIC PROPHYLAXIS
     Dosage: 720 MILLIGRAM, QD
     Route: 042
     Dates: start: 20190226, end: 20190306
  3. CYTARABINE ACCORD [Suspect]
     Active Substance: CYTARABINE
     Indication: SURGICAL PRECONDITIONING
     Dosage: 2000 MILLIGRAM, QD
     Route: 042
     Dates: start: 20190225, end: 20190301
  4. VANCOMYCINE SANDOZ [Suspect]
     Active Substance: VANCOMYCIN
     Indication: PRODUCT USED FOR UNKNOWN INDICATION
     Dosage: UNK
     Route: 042
     Dates: start: 20190302, end: 20190303
  5. IMIPENEM CILASTATINE MYLAN 500 MG/500 MG [Suspect]
     Active Substance: CILASTATIN SODIUM\IMIPENEM
     Indication: SEPTIC SHOCK
     Route: 042
     Dates: start: 20190302, end: 20190308
  6. EMEND [Suspect]
     Active Substance: APREPITANT
     Indication: BONE MARROW TRANSPLANT
     Dosage: 125MG J1 PUIS 80MG
     Route: 048
     Dates: start: 20190225, end: 20190227
  7. CEFTAZIDIMA MYLAN GENERICS [Suspect]
     Active Substance: CEFTAZIDIME
     Indication: SEPTIC SHOCK
     Dosage: UNK
     Route: 042
     Dates: start: 20190301, end: 20190302
  8. EVOLTRA [Suspect]
     Active Substance: CLOFARABINE
     Indication: BONE MARROW TRANSPLANT
     Route: 042
     Dates: start: 20190225, end: 20190301
  9. CEFTRIAXONE MYLAN [Suspect]
     Active Substance: CEFTRIAXONE
     Indication: UROSEPSIS
     Dosage: 1 GRAM, QD
     Route: 042
     Dates: start: 20190227, end: 20190227
  10. ONDANSETRON [Suspect]
     Active Substance: ONDANSETRON
     Indication: ANTIEMETIC SUPPORTIVE CARE
     Dosage: 2 DOSAGE FORM, QD
     Route: 042
     Dates: start: 20190226, end: 20190227
  11. CHIBRO CADRON [Suspect]
     Active Substance: DEXAMETHASONE SODIUM PHOSPHATE\NEOMYCIN SULFATE
     Indication: PRODUCT USED FOR UNKNOWN INDICATION
     Dosage: 1 GOUTTE PAR OEIL
     Route: 047
     Dates: start: 20190225, end: 20190227

REACTIONS (1)
  - Toxic epidermal necrolysis [Fatal]

NARRATIVE: CASE EVENT DATE: 20190303
